FAERS Safety Report 24985271 (Version 1)
Quarter: 2025Q1

REPORT INFORMATION
  Report Type: Spontaneous
  Country: US (occurrence: None)
  Receive Date: 20250216
  Receipt Date: 20250216
  Transmission Date: 20250408
  Serious: Yes (Hospitalization)
  Sender: FDA-CTU
  Company Number: None

PATIENT
  Age: 55 Year
  Sex: Male
  Weight: 94.5 kg

DRUGS (2)
  1. TRIAMCINOLONE ACETONIDE [Suspect]
     Active Substance: TRIAMCINOLONE ACETONIDE
     Indication: Pruritus
     Dosage: OTHER QUANTITY : 15 OINTMENT;?FREQUENCY : AT BEDTIME;?
     Route: 061
     Dates: start: 20250212, end: 20250213
  2. Blood Pressure Indicator Machine [Concomitant]

REACTIONS (1)
  - Pharyngeal swelling [None]

NARRATIVE: CASE EVENT DATE: 20250214
